FAERS Safety Report 7133572-7 (Version None)
Quarter: 2010Q4

REPORT INFORMATION
  Report Type: 
  Country: None (occurrence: None)
  Receive Date: 20101202
  Receipt Date: 20101122
  Transmission Date: 20110411
  Serious: Yes (Other)
  Sender: FDA-Public Use
  Company Number: US-PFIZER INC-US-WYE-H18327110

PATIENT
  Age: 47 Year
  Sex: Female

DRUGS (8)
  1. EFFEXOR XR [Suspect]
     Indication: DEPRESSION
     Dosage: 150.0 MG, 1X/DAY
     Route: 048
  2. EFFEXOR XR [Suspect]
     Indication: FATIGUE
  3. REBIF [Suspect]
     Dosage: 44.0 UG,3X/WK
     Route: 058
     Dates: start: 20100801
  4. GABAPENTIN [Concomitant]
     Dosage: 300 MG, 3X/DAY
     Route: 065
  5. KEPPRA [Concomitant]
     Indication: CONVULSION
     Dosage: 750 MG, 3X/DAY
     Route: 048
  6. LEVOTHYROXINE [Concomitant]
     Indication: HYPOTHYROIDISM
     Dosage: 112 UG, 1X/DAY
     Route: 048
  7. METOPROLOL [Concomitant]
     Dosage: 25 MG, 2X/DAY
     Route: 065
  8. PRAVASTATIN [Concomitant]
     Indication: HYPERLIPIDAEMIA
     Dosage: 40 MG, 1X/DAY
     Route: 048

REACTIONS (6)
  - DEJA VU [None]
  - DYSGEUSIA [None]
  - HYPOAESTHESIA [None]
  - MUSCLE SPASMS [None]
  - MUSCLE TWITCHING [None]
  - SIMPLE PARTIAL SEIZURES [None]
